FAERS Safety Report 6141359-7 (Version None)
Quarter: 2009Q2

REPORT INFORMATION
  Report Type: 
  Country: None (occurrence: None)
  Receive Date: 20090402
  Receipt Date: 20090324
  Transmission Date: 20091009
  Serious: Yes (Other)
  Sender: FDA-Public Use
  Company Number: MM-ROCHE-623849

PATIENT
  Age: 79 Year
  Sex: Female

DRUGS (6)
  1. BONIVA [Suspect]
     Indication: OSTEOARTHRITIS
     Route: 048
     Dates: start: 20090321
  2. CANDESARTAN CILEXETIL [Concomitant]
     Indication: HYPERTENSION
     Dosage: FREQUENCY REPORTED AS DAILY. DRUG REPORTED AS CONTARSARTAN.
     Route: 048
  3. CARVEDILOL [Concomitant]
     Indication: HYPERTENSION
     Dosage: DRUG NAME REPORTED AS CARVIDILOL.
     Route: 048
  4. REPAGLINIDE [Concomitant]
  5. CARBIDOPA AND LEVODOPA [Concomitant]
     Indication: PARKINSONISM
     Dosage: DRUG NAME REPORTED AS SYNDOPA.
     Route: 048
  6. MULTI-VITAMIN [Concomitant]

REACTIONS (5)
  - ABDOMINAL PAIN [None]
  - ARTHRALGIA [None]
  - DIZZINESS [None]
  - PYREXIA [None]
  - VERTIGO [None]
